FAERS Safety Report 5482147-4 (Version None)
Quarter: 2007Q4

REPORT INFORMATION
  Report Type: 
  Country: None (occurrence: None)
  Receive Date: 20071011
  Receipt Date: 20070928
  Transmission Date: 20080405
  Serious: Yes (Death)
  Sender: FDA-Public Use
  Company Number: US-JNJFOC-20071001788

PATIENT
  Age: 6 Month
  Sex: Female

DRUGS (5)
  1. ACETAMINOPHEN [Suspect]
  2. ACETAMINOPHEN [Suspect]
     Indication: INFLUENZA LIKE ILLNESS
     Dosage: UNKNOWN
  3. LINCOCIN [Suspect]
     Indication: INFLUENZA LIKE ILLNESS
     Dosage: UNKNOWN
  4. AMOXICILLIN [Suspect]
     Indication: INFLUENZA LIKE ILLNESS
     Dosage: UNKNOWN
  5. DIMETAPP [Suspect]
     Indication: INFLUENZA LIKE ILLNESS
     Dosage: UNKNOWN

REACTIONS (2)
  - DEATH [None]
  - HEPATITIS FULMINANT [None]
